FAERS Safety Report 4283288-X (Version None)
Quarter: 2004Q1

REPORT INFORMATION
  Report Type: 
  Country: None (occurrence: None)
  Receive Date: 20040129
  Receipt Date: 20040123
  Transmission Date: 20041129
  Serious: Yes (Death, Hospitalization)
  Sender: FDA-Public Use
  Company Number: 03P-056-0245699-00

PATIENT
  Age: 84 Year
  Sex: Male

DRUGS (6)
  1. DEPAKENE [Suspect]
     Indication: EPILEPSY
     Dosage: 1000 MG, 1 IN 1 D, ORAL
     Route: 048
     Dates: start: 20000701, end: 20031219
  2. THEOPHYLLINE [Concomitant]
  3. MONTELUKAST SODIUM [Concomitant]
  4. ASPIRIN [Concomitant]
  5. ARTHROTEC [Concomitant]
  6. NAFTIDROFURYL [Concomitant]

REACTIONS (14)
  - ACUTE PULMONARY OEDEMA [None]
  - ASPARTATE AMINOTRANSFERASE INCREASED [None]
  - BLOOD ALKALINE PHOSPHATASE INCREASED [None]
  - BLOOD CREATINE PHOSPHOKINASE INCREASED [None]
  - BLOOD FIBRINOGEN INCREASED [None]
  - BLOOD LACTATE DEHYDROGENASE INCREASED [None]
  - BLOOD UREA INCREASED [None]
  - DEPRESSED LEVEL OF CONSCIOUSNESS [None]
  - INFLAMMATION [None]
  - METASTASES TO BONE [None]
  - MULTIPLE MYELOMA [None]
  - PROSTATE CANCER [None]
  - PROTHROMBIN TIME RATIO DECREASED [None]
  - RHABDOMYOLYSIS [None]
